FAERS Safety Report 9375629 (Version 3)
Quarter: 2014Q3

REPORT INFORMATION
  Report Type: Spontaneous
  Country: US (occurrence: US)
  Receive Date: 20130628
  Receipt Date: 20140821
  Transmission Date: 20150326
  Serious: Yes (Hospitalization, Disabling, Other)
  Sender: FDA-Public Use
  Company Number: US-009507513-1205USA04970

PATIENT
  Sex: Female
  Weight: 80.73 kg

DRUGS (6)
  1. FOSAMAX [Suspect]
     Active Substance: ALENDRONATE SODIUM
     Dosage: 70 MG, UNK
     Route: 048
     Dates: start: 2001, end: 2008
  2. FOSAMAX [Suspect]
     Active Substance: ALENDRONATE SODIUM
     Indication: OSTEOPOROSIS
     Route: 048
  3. THEOPHYLLINE [Concomitant]
     Active Substance: THEOPHYLLINE
     Indication: ASTHMA
     Dosage: UNK
     Dates: start: 2001
  4. ADVAIR HFA [Concomitant]
     Active Substance: FLUTICASONE PROPIONATE\SALMETEROL XINAFOATE
     Indication: ASTHMA
     Dosage: UNK
     Dates: start: 2001
  5. ALBUTEROL. [Concomitant]
     Active Substance: ALBUTEROL
     Indication: ASTHMA
     Dosage: UNK
     Dates: start: 2001
  6. FOSAMAX [Suspect]
     Active Substance: ALENDRONATE SODIUM
     Indication: OSTEOPOROSIS
     Dosage: 10 MG, UNK
     Route: 048
     Dates: start: 2001, end: 2008

REACTIONS (8)
  - Osteoporosis [Not Recovered/Not Resolved]
  - Femur fracture [Recovering/Resolving]
  - Low turnover osteopathy [Not Recovered/Not Resolved]
  - Adverse event [Unknown]
  - Radius fracture [Unknown]
  - Intramedullary rod insertion [Unknown]
  - Multiple fractures [Not Recovered/Not Resolved]
  - Asthma [Unknown]

NARRATIVE: CASE EVENT DATE: 20011023
